FAERS Safety Report 15657990 (Version 1)
Quarter: 2018Q4

REPORT INFORMATION
  Report Type: Spontaneous
  Country: US (occurrence: US)
  Receive Date: 20181126
  Receipt Date: 20181126
  Transmission Date: 20190205
  Serious: Yes (Hospitalization, Other)
  Sender: FDA-Public Use
  Company Number: US-SA-2018SA316470

PATIENT
  Age: 71 Year
  Sex: Male

DRUGS (1)
  1. LANTUS SOLOSTAR [Suspect]
     Active Substance: INSULIN GLARGINE
     Indication: TYPE 2 DIABETES MELLITUS
     Dosage: 48 U, QD

REACTIONS (7)
  - Foot amputation [Unknown]
  - Staphylococcal infection [Unknown]
  - Hospitalisation [Unknown]
  - Device operational issue [Unknown]
  - Joint surgery [Unknown]
  - Surgery [Unknown]
  - Neoplasm malignant [Unknown]
